FAERS Safety Report 21319935 (Version 2)
Quarter: 2022Q4

REPORT INFORMATION
  Report Type: Spontaneous
  Country: US (occurrence: US)
  Receive Date: 20220911
  Receipt Date: 20221213
  Transmission Date: 20230112
  Serious: No
  Sender: FDA-Public Use
  Company Number: US-SA-SAC20220905001897

PATIENT
  Age: 31 Year
  Sex: Male

DRUGS (1)
  1. DUPIXENT [Suspect]
     Active Substance: DUPILUMAB
     Indication: Dermatitis atopic
     Dosage: 300 MG, QOW
     Route: 058
     Dates: start: 20210410

REACTIONS (7)
  - COVID-19 [Unknown]
  - Sleep disorder [Unknown]
  - Asthma [Unknown]
  - Impaired quality of life [Unknown]
  - Rash [Unknown]
  - Discomfort [Unknown]
  - Dermatitis atopic [Unknown]
